FAERS Safety Report 5508707-X (Version None)
Quarter: 2007Q4

REPORT INFORMATION
  Report Type: 
  Country: None (occurrence: None)
  Receive Date: 20071105
  Receipt Date: 20071030
  Transmission Date: 20080405
  Serious: Yes (Other)
  Sender: FDA-Public Use
  Company Number: 2007334257

PATIENT
  Age: 8 Year
  Sex: Male
  Weight: 36.2878 kg

DRUGS (1)
  1. LISTERINE TOOTH DEFENSE (SODIUM FLUORIDE) [Suspect]
     Indication: DENTAL FLUORIDE THERAPY
     Dosage: 1 TEASPOON 1 TIME A DAY, ORAL
     Route: 048
     Dates: start: 20071025, end: 20071027

REACTIONS (2)
  - ORAL MUCOSAL BLISTERING [None]
  - STOMATITIS [None]
